FAERS Safety Report 12202379 (Version 1)
Quarter: 2016Q1

REPORT INFORMATION
  Report Type: Report from Study
  Country: CO (occurrence: CO)
  Receive Date: 20160322
  Receipt Date: 20160322
  Transmission Date: 20160526
  Serious: Yes (Hospitalization, Other)
  Sender: FDA-Public Use
  Company Number: PHHY2016CO002229

PATIENT
  Sex: Female
  Weight: 40 kg

DRUGS (7)
  1. METOCLOPRAMIDE. [Concomitant]
     Active Substance: METOCLOPRAMIDE
     Indication: PRODUCT USED FOR UNKNOWN INDICATION
     Route: 065
  2. SANDOSTATIN LAR DEPOT [Suspect]
     Active Substance: OCTREOTIDE ACETATE
     Indication: BREAST CANCER
  3. ACETAMINOPHEN. [Concomitant]
     Active Substance: ACETAMINOPHEN
     Indication: PRODUCT USED FOR UNKNOWN INDICATION
     Route: 065
  4. NYSTATIN. [Concomitant]
     Active Substance: NYSTATIN
     Indication: PRODUCT USED FOR UNKNOWN INDICATION
     Route: 065
  5. LOPERAMIDE [Concomitant]
     Active Substance: LOPERAMIDE
     Indication: PRODUCT USED FOR UNKNOWN INDICATION
     Route: 065
  6. SANDOSTATIN LAR DEPOT [Suspect]
     Active Substance: OCTREOTIDE ACETATE
     Indication: COLON CANCER
     Dosage: 20 MG, QMO
     Route: 030
     Dates: start: 20100709, end: 20160129
  7. RANITIDINE [Concomitant]
     Active Substance: RANITIDINE\RANITIDINE HYDROCHLORIDE
     Indication: PRODUCT USED FOR UNKNOWN INDICATION
     Dosage: UNK
     Route: 065

REACTIONS (12)
  - Pain [Unknown]
  - Diarrhoea [Recovering/Resolving]
  - Product use issue [Unknown]
  - Gastrointestinal pain [Unknown]
  - Dry skin [Unknown]
  - Vomiting [Recovering/Resolving]
  - Asthenia [Unknown]
  - Terminal state [Unknown]
  - Weight decreased [Recovering/Resolving]
  - Skin ulcer [Unknown]
  - Malnutrition [Recovering/Resolving]
  - Abdominal pain upper [Unknown]
